FAERS Safety Report 8326087-1 (Version None)
Quarter: 2012Q2

REPORT INFORMATION
  Report Type: 
  Country: None (occurrence: None)
  Receive Date: 20120501
  Receipt Date: 20120425
  Transmission Date: 20120825
  Serious: Yes (Other)
  Sender: FDA-Public Use
  Company Number: JP-GLAXOSMITHKLINE-B0798666A

PATIENT
  Sex: Female

DRUGS (6)
  1. TOFRANIL [Suspect]
     Indication: DEPRESSION
     Route: 048
     Dates: end: 20120416
  2. FLUVOXAMINE MALEATE [Suspect]
     Indication: DEPRESSION
     Route: 048
     Dates: end: 20120416
  3. DEPAKENE [Suspect]
     Route: 048
     Dates: start: 20120416
  4. LAMICTAL [Suspect]
     Indication: BIPOLAR DISORDER
     Route: 048
     Dates: start: 20120201, end: 20120328
  5. DEPAKENE [Suspect]
     Indication: BIPOLAR DISORDER
     Route: 048
     Dates: end: 20120415
  6. LAMICTAL [Suspect]
     Dosage: 100MG PER DAY
     Route: 048
     Dates: start: 20120329, end: 20120416

REACTIONS (4)
  - MANIA [None]
  - LOGORRHOEA [None]
  - PSYCHOMOTOR HYPERACTIVITY [None]
  - DRUG LEVEL INCREASED [None]
